FAERS Safety Report 7229096-9 (Version None)
Quarter: 2011Q1

REPORT INFORMATION
  Report Type: 
  Country: None (occurrence: None)
  Receive Date: 20110117
  Receipt Date: 20110113
  Transmission Date: 20110831
  Serious: Yes (Hospitalization, Other)
  Sender: FDA-Public Use
  Company Number: JP-SANOFI-AVENTIS-2010SA073669

PATIENT
  Age: 66 Year
  Sex: Male
  Weight: 50.3 kg

DRUGS (4)
  1. DEXAMETHASONE [Concomitant]
     Dates: start: 20101203, end: 20101203
  2. TAXOTERE [Suspect]
     Route: 041
     Dates: start: 20101203, end: 20101203
  3. KYTRIL [Concomitant]
     Dates: start: 20101203, end: 20101203
  4. FOIPAN [Concomitant]
     Indication: PANCREATITIS CHRONIC
     Dates: start: 20101129

REACTIONS (3)
  - CONVULSION [None]
  - HYPONATRAEMIA [None]
  - LOSS OF CONSCIOUSNESS [None]
